FAERS Safety Report 6257395-6 (Version None)
Quarter: 2009Q3

REPORT INFORMATION
  Report Type: 
  Country: None (occurrence: None)
  Receive Date: 20090701
  Receipt Date: 20090701
  Transmission Date: 20100115
  Serious: Yes (Other)
  Sender: FDA-Public Use
  Company Number: None

PATIENT
  Age: 50 Year
  Sex: Male
  Weight: 87.9978 kg

DRUGS (1)
  1. PAROXETINE HCL [Suspect]
     Indication: BIPOLAR II DISORDER
     Dosage: ONE TABLET PER DAY PO
     Route: 048
     Dates: start: 20080620, end: 20080722

REACTIONS (25)
  - ABNORMAL BEHAVIOUR [None]
  - ANXIETY [None]
  - CHEST DISCOMFORT [None]
  - CONDITION AGGRAVATED [None]
  - CRYING [None]
  - DEPRESSION [None]
  - DIARRHOEA [None]
  - DISTURBANCE IN ATTENTION [None]
  - DRUG DOSE OMISSION [None]
  - DRUG INTOLERANCE [None]
  - DRY MOUTH [None]
  - FALL [None]
  - FEAR [None]
  - FEELING ABNORMAL [None]
  - HEADACHE [None]
  - IMPAIRED WORK ABILITY [None]
  - INSOMNIA [None]
  - LIBIDO DECREASED [None]
  - LOSS OF EMPLOYMENT [None]
  - PRODUCT SUBSTITUTION ISSUE [None]
  - PSYCHIATRIC SYMPTOM [None]
  - STUPOR [None]
  - SUICIDAL IDEATION [None]
  - TREMOR [None]
  - UNEMPLOYMENT [None]
